FAERS Safety Report 8790309 (Version 2)
Quarter: 2013Q1

REPORT INFORMATION
  Report Type: Spontaneous
  Country: KR (occurrence: KR)
  Receive Date: 20120917
  Receipt Date: 20130115
  Transmission Date: 20140127
  Serious: Yes (Life-Threatening, Hospitalization, Other)
  Sender: FDA-Public Use
  Company Number: KR-JNJFOC-20120904417

PATIENT
  Age: 65 Year
  Sex: Male

DRUGS (2)
  1. DUROGESIC D-TRANS [Suspect]
     Indication: ANALGESIC THERAPY
     Dosage: 2 X 25 UG/HR
     Route: 062
  2. DUROGESIC D-TRANS [Suspect]
     Indication: ANALGESIC THERAPY
     Route: 062

REACTIONS (4)
  - Cholecystitis acute [Recovered/Resolved]
  - Intentional drug misuse [Unknown]
  - Incorrect dose administered [Unknown]
  - Pain [Unknown]
